FAERS Safety Report 18869039 (Version 3)
Quarter: 2021Q1

REPORT INFORMATION
  Report Type: Spontaneous
  Country: EG (occurrence: EG)
  Receive Date: 20210209
  Receipt Date: 20210313
  Transmission Date: 20210420
  Serious: Yes (Death, Hospitalization, Other)
  Sender: FDA-Public Use
  Company Number: EG-ROCHE-2764953

PATIENT
  Age: 71 Year
  Sex: Male

DRUGS (2)
  1. ACTEMRA [Suspect]
     Active Substance: TOCILIZUMAB
     Indication: CYTOKINE RELEASE SYNDROME
     Dosage: DOSE: 400 MG/20 ML
     Route: 042
     Dates: start: 20210113
  2. ACTEMRA [Suspect]
     Active Substance: TOCILIZUMAB
     Indication: COVID-19

REACTIONS (7)
  - Death [Fatal]
  - Intentional product use issue [Unknown]
  - Cardiac arrest [Unknown]
  - Oxygen saturation decreased [Unknown]
  - Off label use [Unknown]
  - Pulmonary embolism [Unknown]
  - Bradycardia [Unknown]

NARRATIVE: CASE EVENT DATE: 20210113
